FAERS Safety Report 24378836 (Version 1)
Quarter: 2024Q3

REPORT INFORMATION
  Report Type: Spontaneous
  Country: GB (occurrence: GB)
  Receive Date: 20240930
  Receipt Date: 20240930
  Transmission Date: 20241016
  Serious: Yes (Other)
  Sender: CIPLA
  Company Number: GB-MHRA-MED-202409152025222850-GSVKF

PATIENT

DRUGS (1)
  1. CETIRIZINE [Suspect]
     Active Substance: CETIRIZINE HYDROCHLORIDE
     Indication: Multiple allergies
     Dosage: UNKNOWN, ONCE A DAY
     Route: 065
     Dates: end: 20240911

REACTIONS (2)
  - Brain fog [Recovering/Resolving]
  - Dizziness [Recovered/Resolved]
